FAERS Safety Report 23308581 (Version 1)
Quarter: 2023Q4

REPORT INFORMATION
  Report Type: Report from Study
  Country: US (occurrence: US)
  Receive Date: 20231218
  Receipt Date: 20231218
  Transmission Date: 20240110
  Serious: Yes (Hospitalization)
  Sender: FDA-Public Use
  Company Number: US-ABBVIE-5500773

PATIENT
  Sex: Female

DRUGS (1)
  1. HUMIRA [Suspect]
     Active Substance: ADALIMUMAB
     Indication: Crohn^s disease
     Dosage: STRENGTH: 40 MG, CITRATE FREE
     Route: 058

REACTIONS (4)
  - Cystitis [Not Recovered/Not Resolved]
  - Nasopharyngitis [Recovering/Resolving]
  - Nasal congestion [Recovering/Resolving]
  - Blood magnesium decreased [Not Recovered/Not Resolved]
